FAERS Safety Report 10408406 (Version 1)
Quarter: 2014Q3

REPORT INFORMATION
  Report Type: Spontaneous
  Country: US (occurrence: None)
  Receive Date: 20140825
  Receipt Date: 20140825
  Transmission Date: 20150326
  Serious: Yes (Death)
  Sender: FDA-Public Use
  Company Number: None

PATIENT
  Age: 78 Year
  Sex: Male
  Weight: 90.72 kg

DRUGS (2)
  1. HUMIRA [Suspect]
     Active Substance: ADALIMUMAB
     Indication: PSORIASIS
     Dosage: ONE SHOT PRE-MEASURED EVERY 2 WEEKS GIVEN INTO/UNDER THE SKIN
     Route: 058
     Dates: start: 20050908, end: 20100501
  2. HUMIRA [Suspect]
     Active Substance: ADALIMUMAB
     Indication: PSORIATIC ARTHROPATHY
     Dosage: ONE SHOT PRE-MEASURED EVERY 2 WEEKS GIVEN INTO/UNDER THE SKIN
     Route: 058
     Dates: start: 20050908, end: 20100501

REACTIONS (4)
  - Fatigue [None]
  - Lymphoma [None]
  - Weight decreased [None]
  - Night sweats [None]

NARRATIVE: CASE EVENT DATE: 20140222
